FAERS Safety Report 16016771 (Version 1)
Quarter: 2019Q1

REPORT INFORMATION
  Report Type: Report from Study
  Country: DE (occurrence: DE)
  Receive Date: 20190228
  Receipt Date: 20190228
  Transmission Date: 20190418
  Serious: Yes (Other)
  Sender: FDA-Public Use
  Company Number: DE-AMGEN-DEUSL2019031296

PATIENT
  Sex: Male
  Weight: 77 kg

DRUGS (1)
  1. KYPROLIS [Suspect]
     Active Substance: CARFILZOMIB
     Indication: PLASMA CELL MYELOMA
     Dosage: UNK
     Route: 065

REACTIONS (3)
  - Neuropathy peripheral [Unknown]
  - Neutropenia [Unknown]
  - Cardiac dysfunction [Unknown]

NARRATIVE: CASE EVENT DATE: 201712
